FAERS Safety Report 7176128-2 (Version None)
Quarter: 2010Q4

REPORT INFORMATION
  Report Type: 
  Country: None (occurrence: None)
  Receive Date: 20101215
  Receipt Date: 20101215
  Transmission Date: 20110411
  Serious: Yes (Other)
  Sender: FDA-Public Use
  Company Number: None

PATIENT
  Age: 50 Year
  Sex: Male
  Weight: 87.0906 kg

DRUGS (1)
  1. NORVIR [Suspect]
     Indication: HIV INFECTION
     Dosage: 1 TAB 100 MG TWICE 1 AM AND 1 PM
     Dates: start: 20101026, end: 20101129

REACTIONS (3)
  - DIARRHOEA [None]
  - DYSPEPSIA [None]
  - HEADACHE [None]
